FAERS Safety Report 8399556-6 (Version None)
Quarter: 2012Q2

REPORT INFORMATION
  Report Type: 
  Country: None (occurrence: None)
  Receive Date: 20120531
  Receipt Date: 20120522
  Transmission Date: 20120825
  Serious: Yes (Disabling)
  Sender: FDA-Public Use
  Company Number: US-MERCK-1205USA04373

PATIENT
  Sex: Female

DRUGS (4)
  1. ALENDRONATE SODIUM [Suspect]
     Route: 065
     Dates: start: 20080701, end: 20100601
  2. FOSAMAX [Suspect]
     Route: 048
     Dates: start: 20000601, end: 20010701
  3. FOSAMAX [Suspect]
     Route: 048
     Dates: start: 20020701, end: 20080601
  4. ACTONEL [Suspect]
     Route: 065
     Dates: start: 20010801, end: 20020701

REACTIONS (1)
  - FEMUR FRACTURE [None]
